FAERS Safety Report 4628563-1 (Version None)
Quarter: 2005Q2

REPORT INFORMATION
  Report Type: 
  Country: None (occurrence: None)
  Receive Date: 20050404
  Receipt Date: 20050324
  Transmission Date: 20051028
  Serious: Yes (Hospitalization)
  Sender: FDA-Public Use
  Company Number: 2005SE01771

PATIENT
  Age: 69 Year
  Sex: Female

DRUGS (6)
  1. BLOPRESS [Suspect]
     Indication: HYPERTENSION
     Dosage: 8 MG QD PO
     Route: 048
     Dates: start: 20030304
  2. ANTIHYPERTENSIVES [Concomitant]
  3. CALCIUM CHANNEL BLCOKERS [Concomitant]
  4. INSULINS AND ANALOGUES [Concomitant]
  5. ALPHA GLUCOSIDASE INHIBITORS [Concomitant]
  6. CHOLESTEROL AND TRIGLYCERIDES REDUCERS [Concomitant]

REACTIONS (1)
  - CEREBRAL INFARCTION [None]
